FAERS Safety Report 8256678-8 (Version None)
Quarter: 2012Q2

REPORT INFORMATION
  Report Type: 
  Country: None (occurrence: None)
  Receive Date: 20120403
  Receipt Date: 20120326
  Transmission Date: 20120825
  Serious: Yes (Hospitalization)
  Sender: FDA-Public Use
  Company Number: DE-JNJFOC-20111208674

PATIENT
  Sex: Male

DRUGS (2)
  1. ZYTIGA [Suspect]
     Route: 048
     Dates: start: 20120108
  2. ZYTIGA [Suspect]
     Indication: PRODUCT USED FOR UNKNOWN INDICATION
     Route: 048
     Dates: start: 20111122, end: 20111212

REACTIONS (1)
  - BRADYCARDIA [None]
